FAERS Safety Report 9469954 (Version 1)
Quarter: 2013Q3

REPORT INFORMATION
  Report Type: Report from Study
  Country: VE (occurrence: VE)
  Receive Date: 20130822
  Receipt Date: 20130822
  Transmission Date: 20140515
  Serious: Yes (Death)
  Sender: FDA-Public Use
  Company Number: PHHY2013VE090661

PATIENT
  Age: 65 Year
  Sex: Female

DRUGS (2)
  1. SANDOSTATIN LAR [Suspect]
     Indication: CHOLANGIOCARCINOMA
     Dosage: 20 MG, MONTHLY
  2. AVASTIN [Concomitant]
     Dosage: UNK UKN, UNK

REACTIONS (1)
  - Respiratory arrest [Fatal]
